FAERS Safety Report 18155237 (Version 1)
Quarter: 2020Q3

REPORT INFORMATION
  Report Type: Spontaneous
  Country: US (occurrence: US)
  Receive Date: 20200817
  Receipt Date: 20200817
  Transmission Date: 20201103
  Serious: No
  Sender: FDA-Public Use
  Company Number: US-ALLERGAN-2012552US

PATIENT
  Sex: Male

DRUGS (1)
  1. TESTOSTERONE UNK [Suspect]
     Active Substance: TESTOSTERONE
     Indication: PRODUCT USED FOR UNKNOWN INDICATION
     Dosage: UNK
     Route: 065
     Dates: start: 201902

REACTIONS (7)
  - Headache [Unknown]
  - Swelling [Unknown]
  - Pharyngeal swelling [Unknown]
  - Blood pressure increased [Unknown]
  - Blood testosterone increased [Unknown]
  - Tinnitus [Unknown]
  - Product substitution issue [Unknown]
